FAERS Safety Report 11234945 (Version 2)
Quarter: 2018Q3

REPORT INFORMATION
  Report Type: Spontaneous
  Country: US (occurrence: US)
  Receive Date: 20150702
  Receipt Date: 20180724
  Transmission Date: 20181010
  Serious: No
  Sender: FDA-Public Use
  Company Number: US-009507513-1506USA006592

PATIENT
  Age: 19 Year
  Sex: Female

DRUGS (4)
  1. EMTRICITABINE (+) TENOFOVIR DISOPROXIL FUMARATE [Suspect]
     Active Substance: EMTRICITABINE\TENOFOVIR DISOPROXIL
     Dosage: 1 (UNITS NOT PROVIDED), DAILY, SINCE 18 WEEK OF GESTATION
     Route: 048
     Dates: start: 2014
  2. ATAZANAVIR SULFATE. [Suspect]
     Active Substance: ATAZANAVIR SULFATE
     Dosage: 300 DF (UNITS NOT PROVIDED), DAILY, SINCE 18  TO 29 WEEK OF GESTATION
     Route: 048
     Dates: start: 2014, end: 201404
  3. ISENTRESS [Suspect]
     Active Substance: RALTEGRAVIR POTASSIUM
     Dosage: 800 (UNITS NOT PROVIDED), DAILY, SINCE 29 WEEK OF GESTATION
     Route: 048
     Dates: start: 201404
  4. RITONAVIR. [Suspect]
     Active Substance: RITONAVIR
     Dosage: 100 DF (UNITS NOT PROVIDED), DAILY, SINCE 18 TO 20 WEEK OF GESTATION
     Route: 048
     Dates: start: 2014, end: 201402

REACTIONS (2)
  - Maternal exposure during pregnancy [Recovered/Resolved]
  - No adverse event [Unknown]
